FAERS Safety Report 4903159-2 (Version None)
Quarter: 2006Q1

REPORT INFORMATION
  Report Type: 
  Country: None (occurrence: None)
  Receive Date: 20060207
  Receipt Date: 20051005
  Transmission Date: 20060701
  Serious: Yes (Hospitalization, Disabling)
  Sender: FDA-Public Use
  Company Number: US-MERCK-0510USA04598

PATIENT
  Age: 45 Year
  Sex: Female
  Weight: 80 kg

DRUGS (2)
  1. VIOXX [Suspect]
     Indication: JOINT SPRAIN
     Route: 048
     Dates: start: 19990101
  2. ASPIRIN [Concomitant]
     Route: 065

REACTIONS (16)
  - ABDOMINAL PAIN UPPER [None]
  - ANGIOPATHY [None]
  - AORTIC THROMBOSIS [None]
  - ARTERIAL THROMBOSIS LIMB [None]
  - BLOOD PRESSURE INCREASED [None]
  - CONDITION AGGRAVATED [None]
  - CYANOSIS [None]
  - DEHYDRATION [None]
  - DIARRHOEA [None]
  - GROIN PAIN [None]
  - HAND DERMATITIS [None]
  - INSOMNIA [None]
  - MUSCLE SPASMS [None]
  - NAUSEA [None]
  - RASH [None]
  - VOMITING [None]
